FAERS Safety Report 6283015-0 (Version None)
Quarter: 2009Q3

REPORT INFORMATION
  Report Type: 
  Country: None (occurrence: None)
  Receive Date: 20090722
  Receipt Date: 20090722
  Transmission Date: 20100115
  Serious: Yes (Hospitalization)
  Sender: FDA-Public Use
  Company Number: None

PATIENT
  Sex: Female
  Weight: 80 kg

DRUGS (8)
  1. LACOSAMIDE [Suspect]
     Indication: EPILEPSY
     Dosage: TABLET 200 MG BID ORAL
     Route: 048
     Dates: start: 20050401
  2. LAMICTAL [Concomitant]
  3. QUAMATEL (FAMOTIDINE) [Concomitant]
  4. GERODERM (CINOLAZEPAM) [Concomitant]
  5. RIVOTRIL (CLONAZEPAM) [Concomitant]
  6. SERTAN (PRIMIDONE) [Concomitant]
  7. TRILEPTAL [Concomitant]
  8. NEUROTOP (CARBAMAZEPINE) [Concomitant]

REACTIONS (1)
  - INAPPROPRIATE ANTIDIURETIC HORMONE SECRETION [None]
